FAERS Safety Report 19582246 (Version 1)
Quarter: 2021Q3

REPORT INFORMATION
  Report Type: Spontaneous
  Country: ES (occurrence: ES)
  Receive Date: 20210720
  Receipt Date: 20210720
  Transmission Date: 20211014
  Serious: Yes (Death)
  Sender: FDA-Public Use
  Company Number: NVSC2021ES145515

PATIENT
  Age: 74 Year
  Sex: Male

DRUGS (12)
  1. TRANGOREX [Suspect]
     Active Substance: AMIODARONE HYDROCHLORIDE
     Indication: ACUTE RESPIRATORY DISTRESS SYNDROME
     Dosage: UNK (DESC, 120 AMPOLLAS DE 3 ML)
     Route: 042
     Dates: start: 20200405
  2. MIDAZOLAM ACCORD [Concomitant]
     Active Substance: MIDAZOLAM HYDROCHLORIDE
     Indication: LIGHT ANAESTHESIA
     Dosage: UNK (DESC, 1 JERINGA PRECARGADA DE 5 ML
     Route: 042
     Dates: start: 20200327, end: 20200409
  3. NORADRENALINA BRAUN [Concomitant]
     Active Substance: NOREPINEPHRINE BITARTRATE
     Indication: ACUTE RESPIRATORY DISTRESS SYNDROME
     Dosage: UNK (DESC, 10 AMPOLLAS DE 10 ML)
     Route: 042
     Dates: start: 20200326, end: 20200409
  4. MEROPENEM. [Suspect]
     Active Substance: MEROPENEM
     Indication: ACUTE RESPIRATORY DISTRESS SYNDROME
     Dosage: UNK (DESC)
     Route: 042
     Dates: start: 20200324
  5. FENTANEST [Concomitant]
     Active Substance: FENTANYL CITRATE
     Indication: LIGHT ANAESTHESIA
     Dosage: UNK (DESC, 5 AMPOLLAS DE 3 ML)
     Route: 042
     Dates: start: 20200401
  6. CISATRACURIO [Concomitant]
     Indication: HYPOTONIA
     Dosage: UNK (DESC, 5 VIALES DE 10 ML)
     Route: 042
     Dates: start: 20200324
  7. DEXAMETASONA KERN PHARMA [Concomitant]
     Active Substance: DEXAMETHASONE
     Indication: ACUTE RESPIRATORY DISTRESS SYNDROME
     Dosage: UNK (DESC, 100 AMPOLLAS DE 1 ML)
     Route: 042
     Dates: start: 20200325, end: 20200331
  8. DEXDOR [Concomitant]
     Active Substance: DEXMEDETOMIDINE HYDROCHLORIDE
     Indication: LIGHT ANAESTHESIA
     Dosage: UNK (DESC, 25X2 ML, 25 AMPOLLAS DE 2 ML)
     Route: 042
     Dates: start: 20200406, end: 20200409
  9. DOPAMINA GRIFOLS [Concomitant]
     Indication: ACUTE RESPIRATORY DISTRESS SYNDROME
     Dosage: UNK (DESC, 6 AMPOLLAS DE 5 ML)
     Route: 042
     Dates: start: 20200324
  10. PANTOPRAZOL [Suspect]
     Active Substance: PANTOPRAZOLE SODIUM
     Indication: ACUTE RESPIRATORY DISTRESS SYNDROME
     Dosage: 40 MG (1 VEZ AL DIA)
     Route: 042
     Dates: start: 20200323
  11. LINEZOLID. [Suspect]
     Active Substance: LINEZOLID
     Indication: ACUTE RESPIRATORY DISTRESS SYNDROME
     Dosage: UNK (DESC)
     Route: 042
     Dates: start: 20200330
  12. AZITROMICINA [Suspect]
     Active Substance: AZITHROMYCIN DIHYDRATE
     Indication: ACUTE RESPIRATORY DISTRESS SYNDROME
     Dosage: UNK (DESC)
     Route: 042
     Dates: start: 20200323

REACTIONS (1)
  - SJS-TEN overlap [Fatal]

NARRATIVE: CASE EVENT DATE: 20200410
